FAERS Safety Report 8140827-6 (Version None)
Quarter: 2012Q1

REPORT INFORMATION
  Report Type: 
  Country: None (occurrence: None)
  Receive Date: 20120216
  Receipt Date: 20120207
  Transmission Date: 20120608
  Serious: Yes (Hospitalization)
  Sender: FDA-Public Use
  Company Number: CN-JNJFOC-20120205154

PATIENT
  Age: 25 Year
  Sex: Male

DRUGS (3)
  1. TOPAMAX [Suspect]
     Dosage: 25 MG IN THE MORNING AND 50 MG/NIGHT IN THE FIRST WEEK
     Route: 048
     Dates: start: 20091201
  2. TOPAMAX [Suspect]
     Indication: EPILEPSY
     Route: 048
     Dates: start: 20111001, end: 20120125
  3. TOPAMAX [Suspect]
     Dosage: 50 MG/MORNING AND 50 MG/NIGHT IN THE FOURTH WEEK
     Route: 048
     Dates: start: 20091201, end: 20110701

REACTIONS (6)
  - IMPAIRED SELF-CARE [None]
  - DEPRESSION [None]
  - SUSPICIOUSNESS [None]
  - CONVULSION [None]
  - SOLILOQUY [None]
  - DEPRESSED LEVEL OF CONSCIOUSNESS [None]
